FAERS Safety Report 9303954 (Version 1)
Quarter: 2013Q2

REPORT INFORMATION
  Report Type: Spontaneous
  Country: US (occurrence: US)
  Receive Date: 20130520
  Receipt Date: 20130520
  Transmission Date: 20140414
  Serious: Yes (Hospitalization, Other)
  Sender: FDA-Public Use
  Company Number: 1718972

PATIENT
  Sex: Female

DRUGS (6)
  1. CARBOPLATIN [Suspect]
     Indication: OVARIAN CANCER
     Dosage: SIX TIMES AREA UNDER THE CURVE.
  2. PACLITAXEL [Suspect]
     Indication: OVARIAN CANCER
  3. VORINOSTAT [Suspect]
     Indication: OVARIAN CANCER
  4. DIPHENHYDRAMINE [Concomitant]
  5. ANTIHISTAMINES [Concomitant]
  6. DEXAMETHASONE [Concomitant]

REACTIONS (7)
  - Intestinal fistula [None]
  - Renal failure acute [None]
  - Small intestinal obstruction [None]
  - Sepsis [None]
  - Dehydration [None]
  - Pancytopenia [None]
  - Toxicity to various agents [None]
